FAERS Safety Report 8538564-9 (Version None)
Quarter: 2012Q3

REPORT INFORMATION
  Report Type: 
  Country: None (occurrence: None)
  Receive Date: 20120726
  Receipt Date: 20120723
  Transmission Date: 20120928
  Serious: Yes (Other)
  Sender: FDA-Public Use
  Company Number: US-BAYER-2012-074324

PATIENT
  Sex: Male
  Weight: 86.168 kg

DRUGS (4)
  1. IBUPROFEN [Concomitant]
     Dosage: 200 MG, UNK
  2. ANACIN [Concomitant]
     Dosage: 81 MG, UNK
  3. BETASERON [Suspect]
     Indication: PRODUCT USED FOR UNKNOWN INDICATION
     Dosage: .3 MG, QOD
     Route: 058
  4. LISINOPRIL [Concomitant]
     Dosage: 10 MG, UNK

REACTIONS (5)
  - PARAESTHESIA [None]
  - HYPOAESTHESIA [None]
  - MEMORY IMPAIRMENT [None]
  - DISTURBANCE IN ATTENTION [None]
  - VISUAL IMPAIRMENT [None]
